FAERS Safety Report 8559607-2 (Version None)
Quarter: 2012Q2

REPORT INFORMATION
  Report Type: 
  Country: None (occurrence: None)
  Receive Date: 20120418
  Receipt Date: 20100330
  Transmission Date: 20120825
  Serious: Yes (Hospitalization, Other)
  Sender: FDA-Public Use
  Company Number: PHEH2010US03165

PATIENT
  Sex: Female

DRUGS (2)
  1. DIOVAN [Suspect]
  2. EXFORGE HCT [Suspect]
     Dates: start: 20100219

REACTIONS (1)
  - DRUG INEFFECTIVE [None]
